FAERS Safety Report 6017346-6 (Version None)
Quarter: 2008Q4

REPORT INFORMATION
  Report Type: 
  Country: None (occurrence: None)
  Receive Date: 20081223
  Receipt Date: 20081212
  Transmission Date: 20090506
  Serious: Yes (Hospitalization)
  Sender: FDA-Public Use
  Company Number: PHHO2008US14869

PATIENT
  Age: 30 Year
  Sex: Male

DRUGS (2)
  1. NEORAL [Suspect]
     Dosage: 100 MG, BID
     Route: 048
     Dates: start: 20081201, end: 20081203
  2. NEORAL [Suspect]
     Dosage: 150 MG, BID
     Route: 048
     Dates: start: 20081203, end: 20081206

REACTIONS (4)
  - ABDOMINAL PAIN [None]
  - ABDOMINAL RIGIDITY [None]
  - GASTRITIS [None]
  - UPPER GASTROINTESTINAL HAEMORRHAGE [None]
